FAERS Safety Report 5958673-8 (Version None)
Quarter: 2008Q4

REPORT INFORMATION
  Report Type: 
  Country: None (occurrence: None)
  Receive Date: 20081110
  Receipt Date: 20081012
  Transmission Date: 20090506
  Serious: Yes (Death)
  Sender: FDA-Public Use
  Company Number: CHPA2008US18380

PATIENT
  Age: 1 Day
  Sex: Male

DRUGS (4)
  1. DIPHENHYDRAMINE HCL [Suspect]
     Dosage: OTHER
     Route: 050
  2. ALPRAZOLAM [Suspect]
     Dosage: OTHER
     Route: 050
  3. ZOLPIDEM TARTRATE [Suspect]
     Dosage: OTHER
     Route: 050
  4. FLUOXETINE [Suspect]
     Dosage: OTHER
     Route: 050

REACTIONS (1)
  - DEATH [None]
